FAERS Safety Report 4405959-4 (Version None)
Quarter: 2004Q3

REPORT INFORMATION
  Report Type: 
  Country: None (occurrence: None)
  Receive Date: 20040723
  Receipt Date: 20040220
  Transmission Date: 20050211
  Serious: No
  Sender: FDA-Public Use
  Company Number: US-GLAXOSMITHKLINE-A0499213A

PATIENT
  Age: 60 Year
  Sex: Female

DRUGS (3)
  1. AVANDIA [Suspect]
     Dosage: 8MCG PER DAY
     Route: 048
  2. GLUCOPHAGE [Concomitant]
  3. MICRONASE [Concomitant]

REACTIONS (1)
  - WEIGHT INCREASED [None]
